FAERS Safety Report 16485734 (Version 1)
Quarter: 2019Q2

REPORT INFORMATION
  Report Type: Spontaneous
  Country: US (occurrence: US)
  Receive Date: 20190517
  Receipt Date: 20190517
  Transmission Date: 20190711
  Serious: Yes (Hospitalization, Other)
  Sender: FDA-Public Use
  Company Number: None

PATIENT
  Age: 58 Year
  Sex: Male
  Weight: 103.2 kg

DRUGS (2)
  1. TEMOZOLOMIDE. [Suspect]
     Active Substance: TEMOZOLOMIDE
     Indication: GLIOBLASTOMA
     Route: 042
     Dates: start: 20190205
  2. NANOLIPOSOMAL IRINOTECAN [Suspect]
     Active Substance: IRINOTECAN
     Indication: GLIOBLASTOMA
     Dosage: ?          OTHER DOSE:50MG//M2; 113.5 MG;OTHER FREQUENCY:Q 2 WEEKS;?
     Route: 048
     Dates: start: 20190205

REACTIONS (2)
  - Clostridium difficile infection [None]
  - Toxicity to various agents [None]

NARRATIVE: CASE EVENT DATE: 20190510
